FAERS Safety Report 16649451 (Version 2)
Quarter: 2019Q3

REPORT INFORMATION
  Report Type: Spontaneous
  Country: US (occurrence: US)
  Receive Date: 20190730
  Receipt Date: 20190822
  Transmission Date: 20191004
  Serious: Yes (Hospitalization)
  Sender: FDA-Public Use
  Company Number: US-SHIRE-US201923783

PATIENT
  Age: 72 Year
  Sex: Female

DRUGS (2)
  1. LIALDA [Suspect]
     Active Substance: MESALAMINE
     Indication: PRODUCT USED FOR UNKNOWN INDICATION
     Dosage: 4 DOSAGE FORM, 1X/DAY:QD
     Route: 065
     Dates: start: 2017
  2. PENTASA [Suspect]
     Active Substance: MESALAMINE
     Indication: PRODUCT USED FOR UNKNOWN INDICATION
     Dosage: UNK
     Route: 065
     Dates: start: 2018

REACTIONS (5)
  - Treatment noncompliance [Unknown]
  - Hospitalisation [Unknown]
  - Product dose omission [Recovered/Resolved]
  - Pain [Unknown]
  - Flatulence [Unknown]

NARRATIVE: CASE EVENT DATE: 2017
